FAERS Safety Report 6905315-0 (Version None)
Quarter: 2010Q3

REPORT INFORMATION
  Report Type: 
  Country: None (occurrence: None)
  Receive Date: 20100804
  Receipt Date: 20100721
  Transmission Date: 20110219
  Serious: No
  Sender: FDA-Public Use
  Company Number: US-B.I. PHARMACEUTICALS,INC./RIDGEFIELD-2010-BP-08449BP

PATIENT
  Sex: Male

DRUGS (1)
  1. ATROVENT HFA [Suspect]

REACTIONS (2)
  - ABDOMINAL DISCOMFORT [None]
  - GOUT [None]
